FAERS Safety Report 6295601-2 (Version None)
Quarter: 2009Q3

REPORT INFORMATION
  Report Type: 
  Country: None (occurrence: None)
  Receive Date: 20090731
  Receipt Date: 20090716
  Transmission Date: 20100115
  Serious: Yes (Disabling)
  Sender: FDA-Public Use
  Company Number: RENA-1000467

PATIENT
  Age: 48 Year
  Sex: Male

DRUGS (6)
  1. RENAGEL [Suspect]
     Indication: HYPERPHOSPHATAEMIA
     Dosage: 0.8 G, TID, ORAL
     Route: 048
     Dates: start: 20081101, end: 20090115
  2. ROCALTROL (CALCITRIOL) UNKNOWN [Concomitant]
  3. TITRALAC (AMINOACETIC ACID, CALCIUM CARBONATE) UNKNOWN [Concomitant]
  4. FOLIC ACID [Concomitant]
  5. ERYTHROPOIETIN (ERYTHROPOIETIN) UNKNOWN [Concomitant]
  6. VITAMIN B UNKNOWN [Concomitant]

REACTIONS (2)
  - BALANCE DISORDER [None]
  - MUSCULAR WEAKNESS [None]
